FAERS Safety Report 7247315-X (Version None)
Quarter: 2011Q1

REPORT INFORMATION
  Report Type: 
  Country: None (occurrence: None)
  Receive Date: 20110127
  Receipt Date: 20110125
  Transmission Date: 20110831
  Serious: Yes (Life-Threatening)
  Sender: FDA-Public Use
  Company Number: B0695848A

PATIENT
  Sex: Female

DRUGS (9)
  1. VENTOLIN [Concomitant]
     Route: 065
  2. TRANXENE [Concomitant]
     Route: 065
  3. ETOMIDATE [Concomitant]
     Route: 065
     Dates: start: 20110117, end: 20110117
  4. AUGMENTIN [Suspect]
     Indication: ANTIBIOTIC PROPHYLAXIS
     Dosage: 2G SINGLE DOSE
     Route: 042
     Dates: start: 20110117, end: 20110117
  5. REMIFENTANIL [Concomitant]
     Route: 065
     Dates: start: 20110117, end: 20110117
  6. TRACRIUM [Concomitant]
     Route: 042
     Dates: start: 20110117, end: 20110117
  7. NAROPIN [Suspect]
     Dosage: 20MG SINGLE DOSE
     Dates: start: 20110117, end: 20110117
  8. IMOVANE [Concomitant]
     Route: 065
  9. RENAGEL [Concomitant]
     Route: 065

REACTIONS (8)
  - BRONCHOSPASM [None]
  - LEUKOPENIA [None]
  - BRADYCARDIA [None]
  - ERYTHEMA [None]
  - GENERALISED OEDEMA [None]
  - ANAPHYLACTIC SHOCK [None]
  - BONE MARROW FAILURE [None]
  - ANAEMIA [None]
